FAERS Safety Report 6436913-9 (Version None)
Quarter: 2009Q4

REPORT INFORMATION
  Report Type: 
  Country: None (occurrence: None)
  Receive Date: 20091109
  Receipt Date: 20091029
  Transmission Date: 20100525
  Serious: Yes (Hospitalization)
  Sender: FDA-Public Use
  Company Number: 2009011941

PATIENT
  Sex: Male

DRUGS (4)
  1. MODAFINIL [Suspect]
     Indication: ASTHENIA
     Dosage: ORAL ; (TWO TABLETS TWICE PER DAY),ORAL
     Route: 048
     Dates: start: 20050101, end: 20090401
  2. MODAFINIL [Suspect]
     Indication: INFLUENZA
     Dosage: ORAL ; (TWO TABLETS TWICE PER DAY),ORAL
     Route: 048
     Dates: start: 20050101, end: 20090401
  3. MODAFINIL [Suspect]
     Indication: ASTHENIA
     Dosage: ORAL ; (TWO TABLETS TWICE PER DAY),ORAL
     Route: 048
     Dates: start: 20090927, end: 20090927
  4. MODAFINIL [Suspect]
     Indication: INFLUENZA
     Dosage: ORAL ; (TWO TABLETS TWICE PER DAY),ORAL
     Route: 048
     Dates: start: 20090927, end: 20090927

REACTIONS (5)
  - ASTHENIA [None]
  - CONVULSION [None]
  - ENCEPHALITIC INFECTION [None]
  - INFLUENZA [None]
  - SELF-MEDICATION [None]
